FAERS Safety Report 26118849 (Version 1)
Quarter: 2025Q4

REPORT INFORMATION
  Report Type: Spontaneous
  Country: US (occurrence: US)
  Receive Date: 20251203
  Receipt Date: 20251203
  Transmission Date: 20260118
  Serious: Yes (Life-Threatening)
  Sender: ABBVIE
  Company Number: US-MLMSERVICE-20251119-PI718291-00136-1

PATIENT
  Age: 60 Year

DRUGS (4)
  1. ESCITALOPRAM [Suspect]
     Active Substance: ESCITALOPRAM OXALATE
     Indication: Affective disorder
     Route: 065
  2. METHYLENE BLUE [Suspect]
     Active Substance: METHYLENE BLUE
     Indication: Encephalopathy
     Route: 065
  3. IFOSFAMIDE [Concomitant]
     Active Substance: IFOSFAMIDE
     Indication: Metastases to lung
     Route: 065
  4. CODEINE\GUAIFENESIN [Suspect]
     Active Substance: CODEINE\GUAIFENESIN
     Indication: Cough
     Route: 065

REACTIONS (4)
  - Drug clearance decreased [Unknown]
  - Contraindicated product administered [Unknown]
  - Product use in unapproved indication [Unknown]
  - Serotonin syndrome [Recovering/Resolving]
